FAERS Safety Report 9925897 (Version 2)
Quarter: 2014Q1

REPORT INFORMATION
  Report Type: Report from Study
  Country: JP (occurrence: JP)
  Receive Date: 20140226
  Receipt Date: 20140331
  Transmission Date: 20141002
  Serious: Yes (Hospitalization)
  Sender: FDA-Public Use
  Company Number: JP-TAKEDA-2014TJP001844

PATIENT
  Age: 80 Year
  Sex: Male
  Weight: 72.2 kg

DRUGS (10)
  1. ALOGLIPTIN [Suspect]
     Indication: TYPE 2 DIABETES MELLITUS
     Dosage: 25 MG, QD
     Route: 048
     Dates: start: 20120905
  2. BLOPRESS [Concomitant]
     Dosage: UNK
     Route: 048
  3. BAYASPIRIN [Concomitant]
     Dosage: UNK
     Route: 048
  4. CARVEDILOL [Concomitant]
     Dosage: UNK
     Route: 048
  5. RABEPRAZOLE SODIUM [Concomitant]
     Dosage: UNK
     Route: 048
  6. AMLODIPINE BESILATE [Concomitant]
     Dosage: UNK
     Route: 048
  7. PLAVIX [Concomitant]
     Dosage: UNK
     Route: 048
  8. TAISIROL [Concomitant]
     Dosage: UNK
     Route: 048
  9. PRAVASTATIN SODIUM [Concomitant]
     Dosage: UNK
     Route: 048
  10. ADOAIR [Concomitant]
     Dosage: UNK
     Route: 055

REACTIONS (1)
  - Pneumonia [Recovered/Resolved]
